FAERS Safety Report 4433767-7 (Version None)
Quarter: 2004Q3

REPORT INFORMATION
  Report Type: 
  Country: None (occurrence: None)
  Receive Date: 20040824
  Receipt Date: 20030817
  Transmission Date: 20050211
  Serious: Yes (Life-Threatening, Hospitalization)
  Sender: FDA-Public Use
  Company Number: BRO-007615

PATIENT
  Age: 85 Year
  Sex: Male

DRUGS (17)
  1. IOPAMIDOL [Suspect]
     Indication: AGE INDETERMINATE MYOCARDIAL INFARCTION
     Dosage: 100 ML, 2909 MG, INTRACORONARY, INTRACORONARY
     Route: 022
     Dates: start: 20040617, end: 20040617
  2. IOPAMIDOL [Suspect]
     Indication: ARTERIOGRAM CORONARY
     Dosage: 100 ML, 2909 MG, INTRACORONARY, INTRACORONARY
     Route: 022
     Dates: start: 20040617, end: 20040617
  3. IOPAMIDOL [Suspect]
     Indication: AGE INDETERMINATE MYOCARDIAL INFARCTION
     Dosage: 100 ML, 2909 MG, INTRACORONARY, INTRACORONARY
     Route: 022
     Dates: start: 20040617, end: 20040618
  4. IOPAMIDOL [Suspect]
     Indication: ARTERIOGRAM CORONARY
     Dosage: 100 ML, 2909 MG, INTRACORONARY, INTRACORONARY
     Route: 022
     Dates: start: 20040617, end: 20040618
  5. CEFAPENE PIVOXIL HYDROCHLORIDE/ FLOMOX [Suspect]
     Indication: INFECTION PROPHYLAXIS
     Dosage: 300 MG, PO
     Route: 048
     Dates: start: 20040617, end: 20040621
  6. GLYBURIDE [Concomitant]
  7. PERSANTINE (DIPHYDAMOLE) [Concomitant]
  8. BASEN (VOGLIBOSE) [Concomitant]
  9. RIBAZEN (TRANILAST) [Concomitant]
  10. SIGMART, (NICORANDIL) [Concomitant]
  11. MAGNESIUM OXIDE [Concomitant]
  12. HERBESSER- SLOW RLEASE (DILTIAZEM HYDROCHLORIDE) [Concomitant]
  13. LANSOPRAZOLE [Concomitant]
  14. DASEN, (DSERRAPETASE) [Concomitant]
  15. ITOROL (ROSOSORBIDE MONONIRATE) [Concomitant]
  16. RINGEREAZE, (LOXOPROFEN SODIUM) [Concomitant]
  17. TIAPASTON [Concomitant]

REACTIONS (4)
  - ANOREXIA [None]
  - FUNGAL INFECTION [None]
  - PHARYNGEAL OEDEMA [None]
  - STEVENS-JOHNSON SYNDROME [None]
